FAERS Safety Report 5355694-3 (Version None)
Quarter: 2007Q2

REPORT INFORMATION
  Report Type: 
  Country: None (occurrence: None)
  Receive Date: 20070530
  Receipt Date: 20061016
  Transmission Date: 20071010
  Serious: Yes (Hospitalization)
  Sender: FDA-Public Use
  Company Number: US200610002835

PATIENT
  Age: 49 Year
  Sex: Male
  Weight: 72.6 kg

DRUGS (10)
  1. ZYPREXA [Suspect]
     Dosage: SEE IMAGE
     Dates: start: 20000301
  2. ZYPREXA [Suspect]
     Dosage: SEE IMAGE
     Dates: start: 20000301
  3. ZYPREXA [Suspect]
     Dosage: SEE IMAGE
     Dates: start: 20000301
  4. ABILIFY [Concomitant]
  5. SEROQUEL [Concomitant]
  6. RISPERDAL /SWE/ (RISPERIDONE) [Concomitant]
  7. PROZAC [Concomitant]
  8. REMERON [Concomitant]
  9. ZOLOFT [Concomitant]
  10. TRAZODONE HCL [Concomitant]

REACTIONS (1)
  - PANCREATITIS [None]
